FAERS Safety Report 10094778 (Version 1)
Quarter: 2014Q2

REPORT INFORMATION
  Report Type: Spontaneous
  Country: IT (occurrence: None)
  Receive Date: 20140418
  Receipt Date: 20140418
  Transmission Date: 20141212
  Serious: Yes (Other)
  Sender: FDA-Public Use
  Company Number: 2014IT00387

PATIENT
  Sex: Female

DRUGS (2)
  1. CARBOPLATIN (CARBOPLATIN) INJECTION [Suspect]
     Indication: OVARIAN CANCER
     Dosage: AUC  2 MG/ML PER MIN EVERY WEEK
     Route: 042
  2. PACLITAXEL (PACLITAXEL) [Suspect]
     Indication: OVARIAN CANCER
     Route: 042

REACTIONS (1)
  - Arrhythmia [None]
